FAERS Safety Report 4348051-X (Version None)
Quarter: 2004Q2

REPORT INFORMATION
  Report Type: 
  Country: None (occurrence: None)
  Receive Date: 20040422
  Receipt Date: 20040420
  Transmission Date: 20050107
  Serious: Yes (Death, Hospitalization)
  Sender: FDA-Public Use
  Company Number: 200411194GDS

PATIENT
  Age: 42 Year
  Sex: Male

DRUGS (2)
  1. ASPIRIN [Suspect]
  2. DRAIN OPENER (SULFURIC ACID) [Suspect]

REACTIONS (10)
  - ABDOMINAL PAIN [None]
  - ACIDOSIS [None]
  - CAUSTIC INJURY [None]
  - DISSEMINATED INTRAVASCULAR COAGULATION [None]
  - GASTROINTESTINAL NECROSIS [None]
  - HAEMOGLOBIN DECREASED [None]
  - HYPOTENSION [None]
  - OEDEMA [None]
  - ORAL PAIN [None]
  - PHARYNGOLARYNGEAL PAIN [None]
